FAERS Safety Report 5293909-0 (Version None)
Quarter: 2007Q2

REPORT INFORMATION
  Report Type: 
  Country: None (occurrence: None)
  Receive Date: 20070411
  Receipt Date: 20070330
  Transmission Date: 20071010
  Serious: Yes (Other)
  Sender: FDA-Public Use
  Company Number: US-PFIZER INC-2007026839

PATIENT
  Sex: Female

DRUGS (1)
  1. CHANTIX [Suspect]
     Indication: SMOKING CESSATION THERAPY
     Dosage: FREQ:INTERVAL: EVERY DAY
     Route: 048

REACTIONS (15)
  - CHILLS [None]
  - COLD SWEAT [None]
  - DRY MOUTH [None]
  - DYSPEPSIA [None]
  - EATING DISORDER [None]
  - GASTRITIS [None]
  - GASTROINTESTINAL DISORDER [None]
  - GLOSSODYNIA [None]
  - HEADACHE [None]
  - LACTOSE INTOLERANCE [None]
  - NAUSEA [None]
  - PHARYNGOLARYNGEAL PAIN [None]
  - SALIVARY GLAND DISORDER [None]
  - SJOGREN'S SYNDROME [None]
  - WEIGHT DECREASED [None]
